FAERS Safety Report 13849813 (Version 2)
Quarter: 2017Q4

REPORT INFORMATION
  Report Type: Spontaneous
  Country: US (occurrence: US)
  Receive Date: 20170809
  Receipt Date: 20171012
  Transmission Date: 20180320
  Serious: Yes (Other)
  Sender: FDA-Public Use
  Company Number: US-BAYER-2017-152386

PATIENT
  Age: 16 Year
  Sex: Female
  Weight: 48.98 kg

DRUGS (3)
  1. SKYLA [Suspect]
     Active Substance: LEVONORGESTREL
     Indication: DYSMENORRHOEA
  2. SKYLA [Suspect]
     Active Substance: LEVONORGESTREL
     Indication: CONTRACEPTION
     Dosage: 14 MCG/24HR, CONT
     Route: 015
     Dates: start: 20170525, end: 20170802
  3. BETADINE [POVIDONE-IODINE] [Concomitant]

REACTIONS (2)
  - Device dislocation [None]
  - Genital haemorrhage [None]

NARRATIVE: CASE EVENT DATE: 20170802
